FAERS Safety Report 7708345-4 (Version None)
Quarter: 2011Q3

REPORT INFORMATION
  Report Type: 
  Country: None (occurrence: None)
  Receive Date: 20110825
  Receipt Date: 20110816
  Transmission Date: 20111222
  Serious: Yes (Other)
  Sender: FDA-Public Use
  Company Number: GB-SP-2011-03375

PATIENT
  Sex: Female
  Weight: 68 kg

DRUGS (1)
  1. IMMUCYST [Suspect]
     Indication: PRODUCT USED FOR UNKNOWN INDICATION
     Dosage: NOT REPORTED
     Route: 065

REACTIONS (8)
  - BOVINE TUBERCULOSIS [None]
  - CHILLS [None]
  - PUBIC PAIN [None]
  - POLLAKIURIA [None]
  - UROSEPSIS [None]
  - CYSTITIS [None]
  - DYSURIA [None]
  - PYREXIA [None]
